FAERS Safety Report 7915918-2 (Version None)
Quarter: 2011Q4

REPORT INFORMATION
  Report Type: 
  Country: None (occurrence: None)
  Receive Date: 20111115
  Receipt Date: 20111103
  Transmission Date: 20120403
  Serious: Yes (Hospitalization, Other)
  Sender: FDA-Public Use
  Company Number: US-ELI_LILLY_AND_COMPANY-US201111003179

PATIENT
  Sex: Female

DRUGS (16)
  1. TRIAMTERENE [Concomitant]
  2. HYDROCHLOROTHIAZIDE [Concomitant]
  3. DOCUSATE SODIUM [Concomitant]
     Dosage: 100 MG, UNK
  4. VITAMIN D [Concomitant]
  5. POTASSIUM CHLORIDE [Concomitant]
     Dosage: 10 MEQ, UNK
  6. ZOLPIDEM [Concomitant]
  7. FORTEO [Suspect]
     Indication: OSTEOPOROSIS
     Dosage: 20 UG, QD
     Dates: start: 20110401
  8. NASAL SALINE [Concomitant]
  9. ACETAMINOPHEN [Concomitant]
     Dosage: 325 MG, UNK
  10. RESTASIS [Concomitant]
  11. CALCIUM CARBONATE [Concomitant]
  12. MULTI-VITAMIN [Concomitant]
  13. SOTALOL HCL [Concomitant]
     Dosage: 80 MG, UNK
  14. FORMOTEROL FUMARATE [Concomitant]
     Dosage: UNK, BID
     Route: 055
  15. HYDROCODONE BITARTRATE [Concomitant]
  16. MOMETASONE FUROATE [Concomitant]
     Dosage: UNK, BID
     Route: 055

REACTIONS (4)
  - FALL [None]
  - CONTUSION [None]
  - FOREARM FRACTURE [None]
  - WRIST FRACTURE [None]
